FAERS Safety Report 8842872 (Version 1)
Quarter: 2012Q4

REPORT INFORMATION
  Report Type: 
  Country: DK (occurrence: DK)
  Receive Date: 20121016
  Receipt Date: 20121016
  Transmission Date: 20130627
  Serious: Yes (Disabling)
  Sender: FDA-Public Use
  Company Number: DK-ASTRAZENECA-2012SE77097

PATIENT
  Age: 70 Year
  Sex: Male

DRUGS (2)
  1. ZOLADEX [Suspect]
     Indication: PROSTATE CANCER
     Route: 058
     Dates: start: 20110215, end: 20120424
  2. LISINOPRIL [Concomitant]
     Indication: HYPERTENSION
     Dates: start: 20110901

REACTIONS (1)
  - Dyspnoea exertional [Not Recovered/Not Resolved]
